FAERS Safety Report 6853857-9 (Version None)
Quarter: 2010Q3

REPORT INFORMATION
  Report Type: 
  Country: None (occurrence: None)
  Receive Date: 20100717
  Receipt Date: 20071221
  Transmission Date: 20110219
  Serious: No
  Sender: FDA-Public Use
  Company Number: US-PFIZER INC-2007108442

PATIENT
  Sex: Female

DRUGS (5)
  1. CHANTIX [Suspect]
     Indication: SMOKING CESSATION THERAPY
     Dates: start: 20071219
  2. LEXAPRO [Concomitant]
  3. KLONOPIN [Concomitant]
  4. PREVACID [Concomitant]
  5. SEROQUEL [Concomitant]

REACTIONS (1)
  - INCORRECT DOSE ADMINISTERED [None]
